FAERS Safety Report 4553234-X (Version None)
Quarter: 2005Q1

REPORT INFORMATION
  Report Type: 
  Country: None (occurrence: None)
  Receive Date: 20050113
  Receipt Date: 20050113
  Transmission Date: 20050727
  Serious: Yes (Death)
  Sender: FDA-Public Use
  Company Number: None

PATIENT
  Age: 68 Year
  Sex: Male
  Weight: 80.2867 kg

DRUGS (1)
  1. TAXOL [Suspect]

REACTIONS (6)
  - ACCIDENTAL DEATH [None]
  - CARDIAC ARREST [None]
  - CARDIOGENIC SHOCK [None]
  - DEVICE FAILURE [None]
  - MYOCARDIAL INFARCTION [None]
  - PROCEDURAL COMPLICATION [None]
